FAERS Safety Report 4883237-7 (Version None)
Quarter: 2006Q1

REPORT INFORMATION
  Report Type: 
  Country: None (occurrence: None)
  Receive Date: 20060112
  Receipt Date: 20060103
  Transmission Date: 20060701
  Serious: Yes (Life-Threatening, Hospitalization)
  Sender: FDA-Public Use
  Company Number: 13166

PATIENT
  Age: 63 Year
  Sex: Female
  Weight: 55 kg

DRUGS (26)
  1. CYTARABINE [Suspect]
     Dosage: 2.4 G BID
     Route: 042
  2. GEMTUZUMAB OZOGAMICIN [Suspect]
     Indication: ACUTE MYELOID LEUKAEMIA
     Dosage: 4.8 MG IV
     Route: 042
     Dates: start: 20051110, end: 20051110
  3. CLOFARABINE [Concomitant]
  4. FLUDARABINE [Concomitant]
  5. BISOPROLOL [Concomitant]
  6. COTRIM [Concomitant]
  7. FUROSEMIDE [Concomitant]
  8. SPIRONOLACTONE [Concomitant]
  9. FLUCONAZOLE [Concomitant]
  10. ITRACONAZOLE [Concomitant]
  11. TRIMETHOPRIM [Concomitant]
  12. COLISTIN SULPHATE [Concomitant]
  13. VALSARTAN [Concomitant]
  14. ALLOPURINOL [Concomitant]
  15. ONDANSETRON [Concomitant]
  16. CYCLIZINE [Concomitant]
  17. AMIKACIN [Concomitant]
  18. TAZOCIN [Concomitant]
  19. VANCOMYCIN [Concomitant]
  20. AMPHOTERICIN B [Concomitant]
  21. METRONIDAZOLE [Concomitant]
  22. DIAZEPAM [Concomitant]
  23. RIFAMPICIN [Concomitant]
  24. LANSOPRAZOLE [Concomitant]
  25. LACTULOSE [Concomitant]
  26. MEROPENEM [Concomitant]

REACTIONS (1)
  - VENOOCCLUSIVE DISEASE [None]
